FAERS Safety Report 5962145-4 (Version None)
Quarter: 2008Q4

REPORT INFORMATION
  Report Type: 
  Country: None (occurrence: None)
  Receive Date: 20081121
  Receipt Date: 20081114
  Transmission Date: 20090506
  Serious: Yes (Hospitalization)
  Sender: FDA-Public Use
  Company Number: JP-NOVOPROD-281415

PATIENT
  Sex: Male
  Weight: 58 kg

DRUGS (5)
  1. LEVEMIR [Suspect]
     Indication: TYPE 2 DIABETES MELLITUS
     Dosage: 16 IU, QD
     Route: 058
     Dates: start: 20080911, end: 20081031
  2. LIVALO [Concomitant]
     Dosage: 1 MG, QD
     Route: 048
     Dates: start: 20080630
  3. AMARYL [Concomitant]
     Dosage: 1 MG, QD
     Route: 048
     Dates: start: 20080502
  4. GLUCOBAY [Concomitant]
     Dosage: 150 MG, QD
     Route: 048
  5. FASTIC [Concomitant]
     Dosage: 270 MG, QD
     Route: 048

REACTIONS (1)
  - CARDIAC FAILURE CONGESTIVE [None]
